FAERS Safety Report 5949409-5 (Version None)
Quarter: 2008Q4

REPORT INFORMATION
  Report Type: 
  Country: None (occurrence: None)
  Receive Date: 20081112
  Receipt Date: 20081031
  Transmission Date: 20090506
  Serious: Yes (Other)
  Sender: FDA-Public Use
  Company Number: PHHY2008AT26646

PATIENT
  Sex: Female

DRUGS (1)
  1. GLEEVEC [Suspect]
     Indication: GLIOBLASTOMA
     Dosage: UNK
     Dates: start: 20070101, end: 20081001

REACTIONS (2)
  - OEDEMA PERIPHERAL [None]
  - PYODERMA GANGRENOSUM [None]
